FAERS Safety Report 7563651-1 (Version None)
Quarter: 2011Q2

REPORT INFORMATION
  Report Type: 
  Country: None (occurrence: None)
  Receive Date: 20110622
  Receipt Date: 20110614
  Transmission Date: 20111010
  Serious: Yes (Hospitalization, Other)
  Sender: FDA-Public Use
  Company Number: JP-CEPHALON-2011001799

PATIENT
  Sex: Male
  Weight: 55 kg

DRUGS (17)
  1. SENNOSIDE [Concomitant]
  2. ACETAMINOPHEN [Concomitant]
     Dates: start: 20110118
  3. BENDAMUSTINE HCL [Suspect]
     Indication: MANTLE CELL LYMPHOMA
     Route: 042
     Dates: start: 20101224
  4. HYDROCORTISONE [Concomitant]
  5. ATORVASTATIN [Concomitant]
  6. REBAMIPIDE [Concomitant]
  7. MAGNESIUM OXIDE [Concomitant]
  8. PREDNISOLONE [Concomitant]
     Dates: start: 20101227, end: 20101227
  9. GRANISETRON  HCL [Concomitant]
     Dates: start: 20101224, end: 20110118
  10. ASPIRIN [Concomitant]
     Dates: start: 20101228
  11. CERNITOL [Concomitant]
  12. METHOTREXATE [Concomitant]
     Dates: start: 20101227
  13. NIFEDIPINE [Concomitant]
  14. SULFAMETHOXAZOLE AND TRIMETHOPRIM [Concomitant]
     Dates: start: 20101224, end: 20101228
  15. SODIUM PICOSULFATE [Concomitant]
     Dates: start: 20110122
  16. LANSOPRAZOLE [Concomitant]
     Dates: start: 20101227
  17. NAFTOPIDIL [Concomitant]

REACTIONS (3)
  - LYMPHOCYTE COUNT DECREASED [None]
  - PYREXIA [None]
  - DRUG ERUPTION [None]
